FAERS Safety Report 5321636-X (Version None)
Quarter: 2007Q1

REPORT INFORMATION
  Report Type: 
  Country: None (occurrence: None)
  Receive Date: 20070220
  Receipt Date: 20061227
  Transmission Date: 20070707
  Serious: No
  Sender: FDA-Public Use
  Company Number: TPA2007A00038

PATIENT
  Age: 48 Year
  Sex: Male
  Weight: 97.5234 kg

DRUGS (3)
  1. ROZEREM [Suspect]
     Indication: SLEEP DISORDER
     Dosage: 8 MG, QHS AS REQUIRED, PER ORAL
     Route: 048
     Dates: start: 20061206, end: 20061227
  2. LOPRESSOR [Concomitant]
  3. ASPIRIN [Concomitant]

REACTIONS (5)
  - ABNORMAL DREAMS [None]
  - DYSGEUSIA [None]
  - HALLUCINATION, VISUAL [None]
  - NERVOUSNESS [None]
  - PRURITUS [None]
